FAERS Safety Report 6222260-7 (Version None)
Quarter: 2009Q2

REPORT INFORMATION
  Report Type: 
  Country: None (occurrence: None)
  Receive Date: 20090611
  Receipt Date: 20090602
  Transmission Date: 20091009
  Serious: Yes (Hospitalization)
  Sender: FDA-Public Use
  Company Number: ES-B.I. PHARMACEUTICALS,INC./RIDGEFIELD-2009-ES-00097ES

PATIENT
  Age: 82 Year
  Sex: Male

DRUGS (1)
  1. MIRAPEX [Suspect]
     Indication: PARKINSON'S DISEASE
     Route: 048
     Dates: start: 20080501, end: 20080904

REACTIONS (5)
  - AGGRESSION [None]
  - DELIRIUM [None]
  - HALLUCINATION [None]
  - HOSTILITY [None]
  - REFUSAL OF TREATMENT BY PATIENT [None]
